FAERS Safety Report 7704837-2 (Version None)
Quarter: 2011Q3

REPORT INFORMATION
  Report Type: 
  Country: None (occurrence: None)
  Receive Date: 20110823
  Receipt Date: 20110816
  Transmission Date: 20111222
  Serious: Yes (Hospitalization)
  Sender: FDA-Public Use
  Company Number: PHHO2011FR07166

PATIENT
  Sex: Female
  Weight: 58 kg

DRUGS (5)
  1. KETOPROFEN [Suspect]
     Dosage: 150 MG, UNK
     Route: 048
     Dates: start: 20110414, end: 20110417
  2. AFINITOR [Suspect]
     Indication: NEOPLASM MALIGNANT
     Dosage: 5 MG DAILY
     Route: 048
     Dates: start: 20110417, end: 20110418
  3. AXITINIB [Suspect]
     Indication: NEOPLASM MALIGNANT
     Dosage: 6 MG, UNK
     Route: 048
     Dates: start: 20110405, end: 20110418
  4. AXITINIB [Suspect]
     Dosage: 6 MG, UNK
     Route: 048
     Dates: start: 20110420
  5. AFINITOR [Suspect]
     Dosage: 5 MG, UNK
     Route: 048
     Dates: start: 20110421

REACTIONS (3)
  - DEHYDRATION [None]
  - HYPOTENSION [None]
  - DIARRHOEA [None]
